FAERS Safety Report 5672893-1 (Version None)
Quarter: 2008Q1

REPORT INFORMATION
  Report Type: 
  Country: None (occurrence: None)
  Receive Date: 20080319
  Receipt Date: 20080304
  Transmission Date: 20080703
  Serious: Yes (Death, Congenital Anomaly)
  Sender: FDA-Public Use
  Company Number: A0702274A

PATIENT
  Sex: Female

DRUGS (2)
  1. PAXIL [Suspect]
     Indication: ANXIETY
     Dates: start: 20030701, end: 20031201
  2. VITAMIN TAB [Concomitant]
     Indication: PREGNANCY

REACTIONS (7)
  - ADJUSTMENT DISORDER [None]
  - CONGENITAL ANOMALY [None]
  - DEATH [None]
  - DEVELOPMENTAL DELAY [None]
  - DRUG EXPOSURE DURING PREGNANCY [None]
  - HEART DISEASE CONGENITAL [None]
  - PERSISTENT FOETAL CIRCULATION [None]
